FAERS Safety Report 9217403 (Version 1)
Quarter: 2013Q2

REPORT INFORMATION
  Report Type: Spontaneous
  Country: US (occurrence: None)
  Receive Date: 20130405
  Receipt Date: 20130405
  Transmission Date: 20140414
  Serious: Yes (Other)
  Sender: FDA-Public Use
  Company Number: None

PATIENT
  Age: 62 Year
  Sex: Female
  Weight: 53.2 kg

DRUGS (1)
  1. DALFAMPRIDINE [Suspect]
     Dates: start: 20120828

REACTIONS (7)
  - Muscular weakness [None]
  - Paraesthesia [None]
  - Gait disturbance [None]
  - Dysstasia [None]
  - Hypoaesthesia [None]
  - Incontinence [None]
  - Condition aggravated [None]
